FAERS Safety Report 19259542 (Version 1)
Quarter: 2021Q2

REPORT INFORMATION
  Report Type: Report from Study
  Country: TH (occurrence: TH)
  Receive Date: 20210514
  Receipt Date: 20210514
  Transmission Date: 20210717
  Serious: Yes (Other)
  Sender: FDA-Public Use
  Company Number: TH-EMD SERONO-9237225

PATIENT
  Sex: Male

DRUGS (1)
  1. SAIZEN [Suspect]
     Active Substance: SOMATROPIN
     Indication: PRODUCT USED FOR UNKNOWN INDICATION
     Route: 058

REACTIONS (1)
  - Blood disorder [Unknown]

NARRATIVE: CASE EVENT DATE: 20210507
